FAERS Safety Report 8901211 (Version 9)
Quarter: 2016Q3

REPORT INFORMATION
  Report Type: Spontaneous
  Country: CA (occurrence: CA)
  Receive Date: 20121109
  Receipt Date: 20160912
  Transmission Date: 20161109
  Serious: No
  Sender: FDA-Public Use
  Company Number: CA-ROCHE-1153852

PATIENT
  Age: 52 Year
  Sex: Female

DRUGS (10)
  1. XOLAIR [Suspect]
     Active Substance: OMALIZUMAB
     Route: 058
     Dates: start: 20090330
  2. XOLAIR [Suspect]
     Active Substance: OMALIZUMAB
     Route: 058
     Dates: start: 20160822
  3. XOLAIR [Suspect]
     Active Substance: OMALIZUMAB
     Route: 058
     Dates: start: 20160725
  4. XOLAIR [Suspect]
     Active Substance: OMALIZUMAB
     Route: 058
     Dates: start: 20160805
  5. SINGULAIR [Concomitant]
     Active Substance: MONTELUKAST SODIUM
  6. XOLAIR [Suspect]
     Active Substance: OMALIZUMAB
     Route: 058
     Dates: start: 20160307
  7. XOLAIR [Suspect]
     Active Substance: OMALIZUMAB
     Route: 058
     Dates: start: 20160404
  8. XOLAIR [Suspect]
     Active Substance: OMALIZUMAB
     Indication: ASTHMA
     Route: 058
     Dates: start: 20081208
  9. XOLAIR [Suspect]
     Active Substance: OMALIZUMAB
     Route: 058
     Dates: start: 20091207
  10. PREDNISONE. [Concomitant]
     Active Substance: PREDNISONE

REACTIONS (17)
  - Photophobia [Unknown]
  - Hypertension [Unknown]
  - Nasal congestion [Unknown]
  - Blister rupture [Unknown]
  - Oedema peripheral [Unknown]
  - Sense of oppression [Unknown]
  - Arthritis [Unknown]
  - Fatigue [Unknown]
  - Temperature intolerance [Unknown]
  - Chest discomfort [Unknown]
  - Headache [Unknown]
  - Seasonal allergy [Unknown]
  - Thermal burn [Unknown]
  - Asthma [Recovering/Resolving]
  - Impaired driving ability [Unknown]
  - Dyspnoea [Unknown]
  - Blister [Unknown]

NARRATIVE: CASE EVENT DATE: 2012
